FAERS Safety Report 14625512 (Version 1)
Quarter: 2018Q1

REPORT INFORMATION
  Report Type: Spontaneous
  Country: US (occurrence: US)
  Receive Date: 20180312
  Receipt Date: 20180312
  Transmission Date: 20180509
  Serious: No
  Sender: FDA-Public Use
  Company Number: US-ALLERGAN-1719637US

PATIENT
  Sex: Female
  Weight: 57.6 kg

DRUGS (1)
  1. OXYTROL FOR WOMEN [Suspect]
     Active Substance: OXYBUTYNIN
     Indication: HYPERTONIC BLADDER
     Dosage: 1 DF, UNK - OTHER FREQ.
     Route: 061
     Dates: start: 2014

REACTIONS (3)
  - Product quality issue [Unknown]
  - Rash [Unknown]
  - Drug ineffective [Unknown]
